FAERS Safety Report 13974955 (Version 1)
Quarter: 2017Q3

REPORT INFORMATION
  Report Type: Spontaneous
  Country: US (occurrence: US)
  Receive Date: 20170915
  Receipt Date: 20170915
  Transmission Date: 20171128
  Serious: Yes (Disabling, Other)
  Sender: FDA-Public Use
  Company Number: US-SAOL THERAPEUTICS-0500176565

PATIENT
  Sex: Male

DRUGS (5)
  1. LIORESAL [Suspect]
     Active Substance: BACLOFEN
     Dosage: 500 ?G, \DAY
     Route: 037
  2. BACLOFEN. [Suspect]
     Active Substance: BACLOFEN
     Indication: MUSCLE SPASTICITY
     Dosage: 0.6 ?G, \DAY
     Route: 037
  3. LIORESAL [Suspect]
     Active Substance: BACLOFEN
     Dosage: 25 ?G, \DAY
     Route: 037
  4. LIORESAL [Suspect]
     Active Substance: BACLOFEN
     Indication: MUSCLE SPASTICITY
     Dosage: 1200 ?G, \DAY
     Route: 037
  5. LIORESAL [Suspect]
     Active Substance: BACLOFEN
     Dosage: 700 ?G, \DAY
     Route: 037

REACTIONS (14)
  - Hypoaesthesia [Unknown]
  - Medical device site scar [Recovered/Resolved]
  - Muscle tightness [Unknown]
  - Overdose [Recovered/Resolved]
  - Ocular hyperaemia [Unknown]
  - Dizziness [Unknown]
  - Therapeutic response decreased [Unknown]
  - Back pain [Unknown]
  - Gait disturbance [Recovered/Resolved]
  - Sexual dysfunction [Unknown]
  - Device occlusion [Recovered/Resolved]
  - Pruritus [Unknown]
  - Eye pruritus [Unknown]
  - Hypotonia [Recovered/Resolved]

NARRATIVE: CASE EVENT DATE: 201505
